FAERS Safety Report 4727059-6 (Version None)
Quarter: 2005Q3

REPORT INFORMATION
  Report Type: 
  Country: None (occurrence: None)
  Receive Date: 20050728
  Receipt Date: 20050722
  Transmission Date: 20060218
  Serious: Yes (Other)
  Sender: FDA-Public Use
  Company Number: US-JNJFOC-20040700560

PATIENT
  Sex: Male

DRUGS (15)
  1. EXTRA STRENGTH TYLENOL [Suspect]
  2. EXTRA STRENGTH TYLENOL [Suspect]
     Indication: HEADACHE
     Dosage: 2000 MG-4000 MG DAILY
  3. COREG [Concomitant]
  4. FUROSEMIDE [Concomitant]
     Route: 048
  5. NITROGLYCERIN [Concomitant]
     Dosage: ONCE EVERY 2-4 WEEKS PRN
  6. POTASSIUM CHLORIDE [Concomitant]
  7. ALDACTONE [Concomitant]
     Route: 048
  8. COUMADIN [Concomitant]
  9. LANOXIN [Concomitant]
  10. COENZYME Q10 [Concomitant]
  11. VITAMIN E [Concomitant]
  12. ASCORBIC ACID [Concomitant]
  13. FIBER TABLET [Concomitant]
  14. CLONAZEPAM [Concomitant]
  15. VITAMIN B-12 [Concomitant]

REACTIONS (3)
  - LIVER FUNCTION TEST ABNORMAL [None]
  - OVERDOSE [None]
  - PLEURAL EFFUSION [None]
